FAERS Safety Report 11020735 (Version 1)
Quarter: 2015Q2

REPORT INFORMATION
  Report Type: Spontaneous
  Country: GB (occurrence: GB)
  Receive Date: 20150413
  Receipt Date: 20150413
  Transmission Date: 20150821
  Serious: Yes (Other)
  Sender: FDA-Public Use
  Company Number: GB-JNJFOC-20150400190

PATIENT
  Age: 50 Year
  Sex: Male
  Weight: 97 kg

DRUGS (7)
  1. FLUTICASONE [Concomitant]
     Active Substance: FLUTICASONE\FLUTICASONE PROPIONATE
     Indication: PRODUCT USED FOR UNKNOWN INDICATION
     Dosage: DOSE: 2??CUMULATIVE DOSE TO FIRST REACTION: 1896
     Route: 065
     Dates: start: 20131204
  2. SALBUTAMOL [Concomitant]
     Active Substance: ALBUTEROL
     Dosage: DOSE:2
     Route: 065
     Dates: start: 20121012
  3. IBUPROFEN. [Suspect]
     Active Substance: IBUPROFEN
     Route: 065
  4. COCODAMOL [Concomitant]
     Active Substance: ACETAMINOPHEN\CODEINE PHOSPHATE
     Indication: PRODUCT USED FOR UNKNOWN INDICATION
     Dosage: DOSE: 1-2 (UNIT UNSPECIFIED)
     Route: 065
     Dates: start: 20150303, end: 20150317
  5. NAPROXEN. [Concomitant]
     Active Substance: NAPROXEN
     Indication: PRODUCT USED FOR UNKNOWN INDICATION
     Dosage: 1 TO BE TAKEN TWICE DAILY WHEN REQUIRED.
     Route: 065
     Dates: start: 20150302
  6. IBUPROFEN. [Suspect]
     Active Substance: IBUPROFEN
     Indication: PRODUCT USED FOR UNKNOWN INDICATION
     Route: 065
     Dates: start: 20150303
  7. PIROXICAM. [Concomitant]
     Active Substance: PIROXICAM
     Indication: PRODUCT USED FOR UNKNOWN INDICATION
     Dosage: APPLY AS DIRECTED
     Route: 065
     Dates: start: 20150217, end: 20150221

REACTIONS (1)
  - Eye swelling [Recovered/Resolved]

NARRATIVE: CASE EVENT DATE: 20150323
